FAERS Safety Report 7579508-6 (Version None)
Quarter: 2011Q2

REPORT INFORMATION
  Report Type: 
  Country: None (occurrence: None)
  Receive Date: 20110629
  Receipt Date: 20110613
  Transmission Date: 20111010
  Serious: Yes (Hospitalization, Other)
  Sender: FDA-Public Use
  Company Number: US-BAYER-200929358NA

PATIENT
  Age: 70 Year
  Sex: Male
  Weight: 72.109 kg

DRUGS (36)
  1. TRASYLOL [Suspect]
     Indication: CORONARY ARTERY BYPASS
     Dosage: 200 ML LOADING DOSE FOLLOWED BY 50 ML/HOUR INFUSION
     Route: 042
     Dates: start: 20050124, end: 20050124
  2. TRASYLOL [Suspect]
     Indication: AORTIC VALVE REPLACEMENT
  3. TRASYLOL [Suspect]
     Indication: TRICUSPID VALVE REPAIR
  4. RED BLOOD CELLS [Concomitant]
     Dosage: 4 UNITSUNK
     Route: 042
     Dates: start: 20050124
  5. INSULIN [Concomitant]
     Dosage: UNK
     Dates: start: 20050124, end: 20050124
  6. HEPARIN [Concomitant]
     Dosage: 30,000 UNITS
     Route: 042
     Dates: start: 20050124, end: 20050124
  7. BACITRACIN [Concomitant]
     Dosage: 50,000 UNITS
     Route: 042
     Dates: start: 20050124, end: 20050124
  8. TRASYLOL [Suspect]
     Indication: PHLEBECTOMY
  9. ACETYLSALICYLIC ACID SRT [Concomitant]
     Dosage: 325 MG, QD
     Route: 048
  10. MANNITOL [Concomitant]
     Dosage: 125 MG, UNK
     Route: 042
     Dates: start: 20050124, end: 20050124
  11. PHYTONADIONE [Concomitant]
     Dosage: 5 MG, UNK
     Route: 048
     Dates: start: 20041214
  12. TRASYLOL [Suspect]
     Indication: MITRAL VALVE REPLACEMENT
  13. EPINEPHRINE [Concomitant]
     Dosage: UNK
     Dates: start: 20050124, end: 20050124
  14. OPTIRAY 300 [Concomitant]
     Indication: CATHETERISATION CARDIAC
     Dosage: 21 ML, UNK
     Dates: start: 20050121
  15. COUMADIN [Concomitant]
     Dosage: 4 MG, QD
     Route: 048
  16. VERSED [Concomitant]
     Dosage: 7 MG, UNK
     Route: 042
     Dates: start: 20050124, end: 20050124
  17. METOPROLOL TARTRATE [Concomitant]
     Dosage: UNK
     Route: 048
     Dates: start: 20041201
  18. AZITHROMYCIN [Concomitant]
     Dosage: UNK
     Dates: start: 20041105
  19. FRESH FROZEN PLASMA [Concomitant]
     Dosage: 2 UNITS
     Route: 042
     Dates: start: 20050124
  20. TOPROL-XL [Concomitant]
     Dosage: 50 MG, QD
     Route: 048
  21. VANCOMYCIN [Concomitant]
     Dosage: 1 GRAM INFUSED OVER 60 MINUTES EVERY 48 HOURS
     Route: 042
     Dates: start: 20041219, end: 20050127
  22. LOPRESSOR [Concomitant]
     Dosage: 12.5 MG, QID
     Route: 048
     Dates: start: 20041209
  23. AMIODARONE HCL [Concomitant]
     Dosage: UNK
     Route: 042
     Dates: start: 20041201
  24. LASIX [Concomitant]
     Dosage: 40 MG, QD
     Route: 048
  25. ATIVAN [Concomitant]
     Dosage: UNK
     Route: 048
     Dates: start: 20041201
  26. PLATELETS [Concomitant]
     Dosage: 2 UNITS
     Dates: start: 20050124
  27. DAPTOMYCIN [Concomitant]
     Dosage: UNK
     Dates: start: 20050211
  28. COLCHICINE [Concomitant]
     Dosage: 0.6 MG, TID
     Route: 048
  29. MILRINONE [Concomitant]
     Dosage: 20 MG, UNK
     Route: 042
     Dates: start: 20050124
  30. RIFAMPIN [Concomitant]
     Dosage: 600 MG, QD
     Route: 048
     Dates: start: 20050101
  31. LIPITOR [Concomitant]
     Dosage: 20 MG, QD
     Route: 048
     Dates: start: 20050101
  32. VIAGRA [Concomitant]
     Route: 048
  33. ACETAMINOPHEN [Concomitant]
     Dosage: 650 MG, UNK
     Route: 048
     Dates: start: 20041201
  34. ZOSYN [Concomitant]
     Dosage: 2.25 G, UNK
     Route: 042
     Dates: start: 20050120
  35. CIPROFLOXACIN [Concomitant]
     Dosage: 200MG INFUSED OVER 60 MINUTES EVERY 12 HOURS
     Route: 042
     Dates: start: 20041219
  36. DAPTOMYCIN [Concomitant]
     Dosage: 6MG/KG IV EVERY 48 HOURS
     Route: 042
     Dates: start: 20050127

REACTIONS (12)
  - RENAL FAILURE [None]
  - FEAR [None]
  - RENAL INJURY [None]
  - PAIN [None]
  - MULTI-ORGAN FAILURE [None]
  - STRESS [None]
  - RENAL IMPAIRMENT [None]
  - INJURY [None]
  - EMOTIONAL DISTRESS [None]
  - ANXIETY [None]
  - UNEVALUABLE EVENT [None]
  - ANHEDONIA [None]
